FAERS Safety Report 19157850 (Version 1)
Quarter: 2021Q2

REPORT INFORMATION
  Report Type: Spontaneous
  Country: GB (occurrence: GB)
  Receive Date: 20210420
  Receipt Date: 20210420
  Transmission Date: 20210717
  Serious: Yes (Other)
  Sender: FDA-Public Use
  Company Number: GB-ORGANON-O2104GBR001128

PATIENT
  Age: 28 Year
  Sex: Female
  Weight: 81 kg

DRUGS (9)
  1. NEXPLANON [Suspect]
     Active Substance: ETONOGESTREL
     Indication: ANGIOEDEMA
     Dosage: 68 MILLIGRAM
     Route: 058
     Dates: start: 20180515
  2. CHLORAMPHENICOL [Concomitant]
     Active Substance: CHLORAMPHENICOL
     Dosage: APPLY 3?4 TIMES DAILY FOR 5?7 DAYS.
     Dates: start: 20210222
  3. ADIZEM [Concomitant]
     Active Substance: DILTIAZEM HYDROCHLORIDE
     Dosage: 1 CAPSULE ONCE DAILY
     Dates: start: 20210329
  4. CLENIL MODULITE [Concomitant]
     Active Substance: BECLOMETHASONE DIPROPIONATE
     Dosage: TWO PUFFS TWICE DAILY
     Dates: start: 20210311
  5. VENTOLIN [Concomitant]
     Active Substance: ALBUTEROL SULFATE
     Dosage: 1 TO 2 PUFFS UP TO FOUR TIMES DAILY AS REQUIRED
     Dates: start: 20210217
  6. LYMECYCLINE [Concomitant]
     Active Substance: LYMECYCLINE
     Dosage: ONE CAPSULE DAILY
     Dates: start: 20210308, end: 20210412
  7. ADIZEM [Concomitant]
     Active Substance: DILTIAZEM HYDROCHLORIDE
     Dosage: 1 CAPSULE ONCE DAILY
     Dates: start: 20210127
  8. FLUCLOXACILLIN [Concomitant]
     Active Substance: FLUCLOXACILLIN
     Dosage: 1 CAPSULE FOUR TIMES A DAY FOR 7 DAYS
     Dates: start: 20210222
  9. CITALOPRAM [Concomitant]
     Active Substance: CITALOPRAM HYDROBROMIDE
     Dosage: TAKE ONE DAILY
     Dates: start: 20210412

REACTIONS (1)
  - Pregnancy with implant contraceptive [Recovered/Resolved with Sequelae]

NARRATIVE: CASE EVENT DATE: 20210412
